FAERS Safety Report 5229124-6 (Version None)
Quarter: 2007Q1

REPORT INFORMATION
  Report Type: 
  Country: None (occurrence: None)
  Receive Date: 20061201
  Receipt Date: 20060818
  Transmission Date: 20070707
  Serious: No
  Sender: FDA-Public Use
  Company Number: US200608004239

PATIENT
  Age: 33 Year
  Sex: Female

DRUGS (4)
  1. CYMBALTA [Suspect]
     Indication: DEPRESSION
     Dosage: SEE IMAGE
     Dates: start: 20051101
  2. SYNTHROID [Concomitant]
     Dosage: 30 MG
  3. YASMIN /SWE/ (DROSPIRENONE, ETHINYLESTRADIOL) [Concomitant]
  4. . [Concomitant]

REACTIONS (4)
  - EYE DISORDER [None]
  - MYDRIASIS [None]
  - SOMNOLENCE [None]
  - YAWNING [None]
